FAERS Safety Report 23731343 (Version 1)
Quarter: 2024Q2

REPORT INFORMATION
  Report Type: Spontaneous
  Country: BG (occurrence: BG)
  Receive Date: 20240411
  Receipt Date: 20240411
  Transmission Date: 20240715
  Serious: Yes (Hospitalization, Other)
  Sender: FDA-Public Use
  Company Number: BG-SCIEGENP-2024SCLIT00211

PATIENT
  Sex: Male

DRUGS (8)
  1. AMLODIPINE AND OLMESARTAN MEDOXOMIL [Suspect]
     Active Substance: AMLODIPINE BESYLATE\OLMESARTAN MEDOXOMIL
     Indication: Hypertension
     Dosage: 20MG/5MG ONCE IN THE EVENING
     Route: 065
     Dates: start: 202207, end: 202302
  2. AMLODIPINE AND OLMESARTAN MEDOXOMIL [Suspect]
     Active Substance: AMLODIPINE BESYLATE\OLMESARTAN MEDOXOMIL
     Dosage: 20MG/5MG  ONCE IN THE MORNING
     Route: 065
     Dates: start: 202202
  3. VALSARTAN [Suspect]
     Active Substance: VALSARTAN
     Indication: Hypertension
     Dosage: 2015 TO 2018
     Route: 065
     Dates: start: 2015, end: 2018
  4. HYDROCHLOROTHIAZIDE\VALSARTAN [Suspect]
     Active Substance: HYDROCHLOROTHIAZIDE\VALSARTAN
     Indication: Hypertension
     Dosage: 160MG/12.5MG ONCE IN THE MORNING
     Route: 065
     Dates: start: 2018, end: 202208
  5. HYDROCHLOROTHIAZIDE\OLMESARTAN MEDOXOMIL [Suspect]
     Active Substance: HYDROCHLOROTHIAZIDE\OLMESARTAN MEDOXOMIL
     Indication: Hypertension
     Dosage: 20MG/12.5MG
     Route: 065
     Dates: start: 202207, end: 202302
  6. MOXONIDINE [Concomitant]
     Active Substance: MOXONIDINE
     Indication: Product used for unknown indication
     Dosage: IN THE EVENING WHEN NEEDED
     Route: 065
     Dates: start: 2015
  7. AMIKACIN [Concomitant]
     Active Substance: AMIKACIN
     Indication: Antibiotic therapy
     Dosage: FOR A WEEK
     Route: 030
  8. AMIKACIN [Concomitant]
     Active Substance: AMIKACIN
     Dosage: FOR ANOTHER 5 DAYS
     Route: 030

REACTIONS (2)
  - Basal cell carcinoma [Unknown]
  - Neoplasm malignant [Unknown]
